FAERS Safety Report 13945199 (Version 1)
Quarter: 2017Q3

REPORT INFORMATION
  Report Type: Spontaneous
  Country: IE (occurrence: IE)
  Receive Date: 20170907
  Receipt Date: 20170907
  Transmission Date: 20171128
  Serious: Yes (Hospitalization, Other)
  Sender: FDA-Public Use
  Company Number: IE-SUN PHARMACEUTICAL INDUSTRIES LTD-2017R1-149275

PATIENT
  Age: 42 Year
  Sex: Female
  Weight: 47 kg

DRUGS (1)
  1. PARACETAMOL [Suspect]
     Active Substance: ACETAMINOPHEN
     Indication: PRODUCT USED FOR UNKNOWN INDICATION
     Dosage: 35 X 500 MG TABLET
     Route: 048

REACTIONS (4)
  - Toxicity to various agents [Unknown]
  - Intentional overdose [Recovering/Resolving]
  - Cardiac disorder [Recovering/Resolving]
  - Cardiotoxicity [Recovering/Resolving]
